FAERS Safety Report 6422005-1 (Version None)
Quarter: 2009Q4

REPORT INFORMATION
  Report Type: 
  Country: None (occurrence: None)
  Receive Date: 20091030
  Receipt Date: 20091019
  Transmission Date: 20100525
  Serious: Yes (Other)
  Sender: FDA-Public Use
  Company Number: ES-ELI_LILLY_AND_COMPANY-ES200910005061

PATIENT
  Age: 35 Year
  Sex: Female

DRUGS (3)
  1. PROZAC [Suspect]
     Indication: DEPRESSION
     Dosage: 20 MG, UNKNOWN
     Route: 048
     Dates: start: 20070310
  2. TOPAMAX [Concomitant]
     Indication: DEPRESSION
     Dosage: 200 MG, UNKNOWN
     Route: 048
     Dates: end: 20070309
  3. TOPAMAX [Concomitant]
     Dosage: 400 MG, UNKNOWN
     Route: 048
     Dates: start: 20070310

REACTIONS (2)
  - DRY EYE [None]
  - VISUAL IMPAIRMENT [None]
